FAERS Safety Report 20640794 (Version 2)
Quarter: 2022Q3

REPORT INFORMATION
  Report Type: Spontaneous
  Country: CZ (occurrence: CZ)
  Receive Date: 20220327
  Receipt Date: 20220723
  Transmission Date: 20221027
  Serious: No
  Sender: FDA-Public Use
  Company Number: CZ-BRISTOL-MYERS SQUIBB COMPANY-2022-010040

PATIENT
  Age: 54 Year
  Sex: Male

DRUGS (4)
  1. NIVOLUMAB [Suspect]
     Active Substance: NIVOLUMAB
     Indication: Metastatic renal cell carcinoma
     Dosage: OR A TOTAL OF 4 CYCLES, FOLLOWED BY MONOTHERAPY WITH NIVOLUMAB AT A TOTAL FIXED DOSE OF 480 MG EVERY
     Route: 065
  2. NIVOLUMAB [Suspect]
     Active Substance: NIVOLUMAB
     Dosage: MONOTHERAPY
     Route: 065
  3. NIVOLUMAB [Suspect]
     Active Substance: NIVOLUMAB
     Dosage: RESTARTED AT AN UNKNOWN DATE
     Route: 065
  4. IPILIMUMAB [Suspect]
     Active Substance: IPILIMUMAB
     Indication: Metastatic renal cell carcinoma
     Dosage: OR A TOTAL OF 4 CYCLES
     Route: 065

REACTIONS (4)
  - Abdominal discomfort [Unknown]
  - Weight decreased [Unknown]
  - Transaminases increased [Recovering/Resolving]
  - Fatigue [Unknown]
